FAERS Safety Report 6599160-6 (Version None)
Quarter: 2010Q1

REPORT INFORMATION
  Report Type: 
  Country: None (occurrence: None)
  Receive Date: 20100224
  Receipt Date: 20100216
  Transmission Date: 20100710
  Serious: Yes (Hospitalization, Other)
  Sender: FDA-Public Use
  Company Number: FR-BRISTOL-MYERS SQUIBB COMPANY-14984389

PATIENT
  Age: 26 Year
  Sex: Female

DRUGS (3)
  1. LYSODREN [Suspect]
     Indication: ADRENOCORTICAL CARCINOMA
     Dosage: INITIAL DOSE: 6TABS/D;  REDUCED TO 4TABS/D
  2. HYDROCORTISONE [Concomitant]
  3. FLORINEF [Concomitant]

REACTIONS (7)
  - ADRENAL INSUFFICIENCY [None]
  - DEHYDRATION [None]
  - DISTURBANCE IN ATTENTION [None]
  - DRUG LEVEL ABOVE THERAPEUTIC [None]
  - FEEDING DISORDER [None]
  - PERSONALITY DISORDER [None]
  - SELF-INDUCED VOMITING [None]
